FAERS Safety Report 9802851 (Version 1)
Quarter: 2014Q1

REPORT INFORMATION
  Report Type: Spontaneous
  Country: FR (occurrence: None)
  Receive Date: 20140102
  Receipt Date: 20140102
  Transmission Date: 20141002
  Serious: Yes (Hospitalization)
  Sender: FDA-Public Use
  Company Number: BAP-FR-13-SOP-0072

PATIENT
  Sex: Female

DRUGS (4)
  1. LORAMYC [Suspect]
     Indication: PRODUCT USED FOR UNKNOWN INDICATION
     Route: 002
     Dates: start: 201311, end: 201311
  2. FORLAX (MACROGOL) [Concomitant]
  3. LOVENOX (ENOXAPARIN SODIUM) [Concomitant]
  4. IMOVANE (ZOPICLONE) [Concomitant]

REACTIONS (1)
  - Hepatitis [None]
